FAERS Safety Report 23222202 (Version 1)
Quarter: 2023Q4

REPORT INFORMATION
  Report Type: Spontaneous
  Country: CN (occurrence: CN)
  Receive Date: 20231123
  Receipt Date: 20231123
  Transmission Date: 20240110
  Serious: Yes (Hospitalization, Other)
  Sender: FDA-Public Use
  Company Number: CN-009507513-2311CHN005572

PATIENT
  Age: 82 Year
  Sex: Male

DRUGS (1)
  1. CILASTATIN SODIUM\IMIPENEM [Suspect]
     Active Substance: CILASTATIN SODIUM\IMIPENEM
     Indication: Anti-infective therapy
     Dosage: 0.5 GRAM, QID
     Route: 041
     Dates: start: 20231021, end: 20231031

REACTIONS (4)
  - Drug eruption [Recovering/Resolving]
  - Cross sensitivity reaction [Recovering/Resolving]
  - Drug reaction with eosinophilia and systemic symptoms [Recovering/Resolving]
  - Stroke in evolution [Unknown]

NARRATIVE: CASE EVENT DATE: 20230101
